FAERS Safety Report 7783488-8 (Version None)
Quarter: 2011Q3

REPORT INFORMATION
  Report Type: 
  Country: None (occurrence: None)
  Receive Date: 20110928
  Receipt Date: 20110919
  Transmission Date: 20111222
  Serious: Yes (Other)
  Sender: FDA-Public Use
  Company Number: US-NOVOPROD-334358

PATIENT
  Age: 67 Year
  Sex: Male
  Weight: 140.14 kg

DRUGS (1)
  1. VICTOZA [Suspect]
     Indication: TYPE 2 DIABETES MELLITUS
     Dosage: UNK
     Route: 058
     Dates: start: 20100818

REACTIONS (2)
  - ADENOCARCINOMA [None]
  - DYSPHAGIA [None]
